FAERS Safety Report 7039445-2 (Version None)
Quarter: 2010Q4

REPORT INFORMATION
  Report Type: 
  Country: None (occurrence: None)
  Receive Date: 20101012
  Receipt Date: 20101008
  Transmission Date: 20110411
  Serious: Yes (Other)
  Sender: FDA-Public Use
  Company Number: GB-ROCHE-727514

PATIENT
  Sex: Male
  Weight: 74 kg

DRUGS (3)
  1. AVASTIN [Suspect]
     Indication: LUNG CANCER METASTATIC
     Route: 042
     Dates: start: 20100427, end: 20100810
  2. ALIMTA [Concomitant]
     Indication: LUNG CANCER METASTATIC
     Route: 042
     Dates: start: 20100427, end: 20100810
  3. CISPLATIN [Concomitant]
     Route: 042
     Dates: start: 20100427, end: 20100810

REACTIONS (1)
  - LUNG CANCER METASTATIC [None]
